FAERS Safety Report 17441441 (Version 1)
Quarter: 2020Q1

REPORT INFORMATION
  Report Type: Report from Study
  Country: IT (occurrence: IT)
  Receive Date: 20200220
  Receipt Date: 20200220
  Transmission Date: 20200409
  Serious: Yes (Hospitalization)
  Sender: FDA-Public Use
  Company Number: IT-PFIZER INC-2020068881

PATIENT
  Age: 71 Year
  Sex: Female

DRUGS (4)
  1. ZARZIO [Concomitant]
     Active Substance: FILGRASTIM
     Dosage: UNK
     Route: 058
  2. FARMORUBICINA [Suspect]
     Active Substance: EPIRUBICIN HYDROCHLORIDE
     Dosage: 1 DF, CYCLIC
     Route: 042
     Dates: start: 20191021, end: 20191021
  3. ENDOXAN-BAXTER [Suspect]
     Active Substance: CYCLOPHOSPHAMIDE
     Dosage: 1 DF, CYCLIC
     Route: 042
     Dates: start: 20190906, end: 20191021
  4. BINOCRIT [Concomitant]
     Active Substance: ERYTHROPOIETIN
     Dosage: UNK
     Route: 058

REACTIONS (1)
  - Acute kidney injury [Recovering/Resolving]

NARRATIVE: CASE EVENT DATE: 20191115
